FAERS Safety Report 23084903 (Version 1)
Quarter: 2023Q4

REPORT INFORMATION
  Report Type: Spontaneous
  Country: US (occurrence: US)
  Receive Date: 20231019
  Receipt Date: 20231019
  Transmission Date: 20240110
  Serious: Yes (Hospitalization)
  Sender: FDA-Public Use
  Company Number: US-CMP PHARMA-2023CMP00048

PATIENT
  Age: 50 Year
  Sex: Male

DRUGS (1)
  1. ATORVASTATIN [Suspect]
     Active Substance: ATORVASTATIN
     Dosage: 40 MG, 1X/DAY

REACTIONS (2)
  - Acute respiratory failure [Recovered/Resolved]
  - Immune-mediated myositis [Recovering/Resolving]
